FAERS Safety Report 9963907 (Version 4)
Quarter: 2014Q3

REPORT INFORMATION
  Report Type: Spontaneous
  Country: US (occurrence: US)
  Receive Date: 20140305
  Receipt Date: 20140811
  Transmission Date: 20150326
  Serious: Yes (Hospitalization, Other)
  Sender: FDA-Public Use
  Company Number: US-UCBSA-113537

PATIENT
  Age: 31 Year
  Sex: Male
  Weight: 90.72 kg

DRUGS (1)
  1. CIMZIA [Suspect]
     Active Substance: CERTOLIZUMAB PEGOL
     Indication: CROHN^S DISEASE
     Dosage: 400 MG, EV 4 WEEKS
     Dates: start: 20090710, end: 2014

REACTIONS (5)
  - Perirectal abscess [Recovered/Resolved]
  - Dyspepsia [Unknown]
  - Intestinal obstruction [Recovered/Resolved]
  - Abdominal abscess [Recovered/Resolved]
  - Drug ineffective [Unknown]

NARRATIVE: CASE EVENT DATE: 201311
